FAERS Safety Report 25697975 (Version 1)
Quarter: 2025Q3

REPORT INFORMATION
  Report Type: Report from Study
  Country: TW (occurrence: TW)
  Receive Date: 20250819
  Receipt Date: 20250819
  Transmission Date: 20251020
  Serious: Yes (Other)
  Sender: JOHNSON AND JOHNSON
  Company Number: TW-JNJFOC-20250811702

PATIENT
  Age: 70 Year
  Sex: Male

DRUGS (1)
  1. TREMFYA [Suspect]
     Active Substance: GUSELKUMAB
     Indication: Product used for unknown indication
     Route: 065

REACTIONS (6)
  - Liver transplant [Unknown]
  - Onychomycosis [Recovered/Resolved]
  - Psoriasis [Unknown]
  - Acne [Unknown]
  - Psoriasis [Unknown]
  - Dermatophytosis of nail [Unknown]

NARRATIVE: CASE EVENT DATE: 20230317
